FAERS Safety Report 9631633 (Version 2)
Quarter: 2013Q4

REPORT INFORMATION
  Report Type: Spontaneous
  Country: US (occurrence: US)
  Receive Date: 20131018
  Receipt Date: 20131101
  Transmission Date: 20140711
  Serious: Yes (Other)
  Sender: FDA-Public Use
  Company Number: US-PFIZER INC-2013297470

PATIENT
  Age: 74 Year
  Sex: Male

DRUGS (3)
  1. OXYCODONE HYDROCHLORIDE [Suspect]
     Indication: PAIN
     Dosage: 15 MG, EVERY 3 HOURS PRN
  2. DURAGESIC [Suspect]
     Dosage: UNK
  3. DILAUDID [Suspect]
     Dosage: UNK

REACTIONS (4)
  - Neoplasm malignant [Unknown]
  - Confusional state [Unknown]
  - Fall [Unknown]
  - Drug ineffective [Unknown]
